FAERS Safety Report 16690721 (Version 1)
Quarter: 2019Q3

REPORT INFORMATION
  Report Type: Spontaneous
  Country: AU (occurrence: AU)
  Receive Date: 20190811
  Receipt Date: 20190811
  Transmission Date: 20191004
  Serious: Yes (Death, Other)
  Sender: FDA-Public Use
  Company Number: PHHY2019AU184492

PATIENT
  Age: 55 Year
  Sex: Female

DRUGS (12)
  1. CYCLOPHOSPHAMIDE. [Suspect]
     Active Substance: CYCLOPHOSPHAMIDE
     Indication: SQUAMOUS CELL BREAST CARCINOMA
     Dosage: UNK, 6 CYCLES
     Route: 065
  2. CISPLATIN. [Suspect]
     Active Substance: CISPLATIN
     Indication: SQUAMOUS CELL BREAST CARCINOMA
     Route: 065
  3. ASPIRIN. [Suspect]
     Active Substance: ASPIRIN
     Indication: SQUAMOUS CELL BREAST CARCINOMA
     Dosage: UNK
     Route: 065
  4. MITOMYCIN. [Suspect]
     Active Substance: MITOMYCIN
     Indication: SQUAMOUS CELL BREAST CARCINOMA
     Route: 065
  5. DIPHENYLCYCLOPROPENONE [Suspect]
     Active Substance: DIPHENCYPRONE
     Indication: SQUAMOUS CELL BREAST CARCINOMA
     Route: 065
  6. 5-FLUOROURACIL [Suspect]
     Active Substance: FLUOROURACIL
     Indication: SQUAMOUS CELL BREAST CARCINOMA
     Dosage: UNK UNK, 6 CYCLES
     Route: 065
  7. GEMCITABINE. [Suspect]
     Active Substance: GEMCITABINE
     Indication: SQUAMOUS CELL BREAST CARCINOMA
     Route: 065
  8. CARBOPLATIN. [Concomitant]
     Active Substance: CARBOPLATIN
     Indication: CHEMOTHERAPY
     Route: 065
  9. EVEROLIMUS. [Suspect]
     Active Substance: EVEROLIMUS
     Indication: SQUAMOUS CELL BREAST CARCINOMA
     Route: 065
  10. CAPECITABINE. [Suspect]
     Active Substance: CAPECITABINE
     Indication: SQUAMOUS CELL BREAST CARCINOMA
     Route: 065
  11. EPIRUBICIN [Suspect]
     Active Substance: EPIRUBICIN
     Indication: SQUAMOUS CELL BREAST CARCINOMA
     Dosage: UNK, 6 CYCLES
     Route: 065
  12. DOCETAXEL. [Suspect]
     Active Substance: DOCETAXEL
     Indication: SQUAMOUS CELL BREAST CARCINOMA
     Dosage: UNK UNK, 5 CYCLES
     Route: 065

REACTIONS (3)
  - Breast cancer recurrent [Unknown]
  - Malignant neoplasm progression [Fatal]
  - Metastases to skin [Fatal]
